FAERS Safety Report 11791188 (Version 1)
Quarter: 2015Q4

REPORT INFORMATION
  Report Type: Spontaneous
  Country: CA (occurrence: CA)
  Receive Date: 20151201
  Receipt Date: 20151201
  Transmission Date: 20160305
  Serious: Yes (Other)
  Sender: FDA-Public Use
  Company Number: CA-TEVA-612998ACC

PATIENT
  Age: 7 Year
  Sex: Male
  Weight: 29 kg

DRUGS (6)
  1. ONDANSETRON [Concomitant]
     Active Substance: ONDANSETRON
  2. MELATONIN [Concomitant]
     Active Substance: MELATONIN
  3. QUETIAPINE [Concomitant]
     Active Substance: QUETIAPINE
  4. SULFAMETHOXAZOLE AND TRIMETHOPRIM [Concomitant]
     Active Substance: SULFAMETHOXAZOLE\TRIMETHOPRIM
  5. ETOPOSIDE LIQ IV 20MG/ML [Suspect]
     Active Substance: ETOPOSIDE
     Dosage: ONCE
     Route: 042
  6. ETOPOSIDE LIQ IV 20MG/ML [Suspect]
     Active Substance: ETOPOSIDE
     Indication: EPENDYMOMA MALIGNANT
     Dosage: ONCE
     Route: 042

REACTIONS (5)
  - Drooling [Recovered/Resolved]
  - Ear swelling [Recovered/Resolved]
  - Erythema [Recovered/Resolved]
  - Lip swelling [Recovered/Resolved]
  - Nausea [Recovered/Resolved]
